FAERS Safety Report 24197663 (Version 1)
Quarter: 2024Q3

REPORT INFORMATION
  Report Type: Spontaneous
  Country: US (occurrence: US)
  Receive Date: 20240811
  Receipt Date: 20240811
  Transmission Date: 20241016
  Serious: No
  Sender: GLAXOSMITHKLINE
  Company Number: US-GSKCCFUS-Case-02070027_AE-114527

PATIENT
  Sex: Female

DRUGS (1)
  1. VENTOLIN HFA [Suspect]
     Active Substance: ALBUTEROL SULFATE
     Indication: Product used for unknown indication
     Dosage: UNK
     Dates: start: 2008

REACTIONS (2)
  - Wrong technique in device usage process [Unknown]
  - Wrong technique in product usage process [Unknown]
